FAERS Safety Report 12860786 (Version 1)
Quarter: 2016Q4

REPORT INFORMATION
  Report Type: Spontaneous
  Country: SA (occurrence: SA)
  Receive Date: 20161019
  Receipt Date: 20161019
  Transmission Date: 20170207
  Serious: Yes (Hospitalization)
  Sender: FDA-Public Use
  Company Number: SA-ASTRAZENECA-2016SF07956

PATIENT
  Age: 72 Year
  Sex: Female

DRUGS (10)
  1. DIMICRON [Concomitant]
     Active Substance: GLICLAZIDE
  2. PLAVIX [Concomitant]
     Active Substance: CLOPIDOGREL BISULFATE
  3. KOMBIGLYZE XR [Suspect]
     Active Substance: METFORMIN HYDROCHLORIDE\SAXAGLIPTIN HYDROCHLORIDE
     Indication: ENCEPHALOPATHY
     Dosage: 5/1000, UNKNOWN
     Route: 048
  4. KOMBIGLYZE XR [Suspect]
     Active Substance: METFORMIN HYDROCHLORIDE\SAXAGLIPTIN HYDROCHLORIDE
     Indication: ENCEPHALOPATHY
     Dosage: 1000/2.5 UNKNOWN
     Route: 048
  5. ZOKOR [Concomitant]
  6. KOMBIGLYZE XR [Suspect]
     Active Substance: METFORMIN HYDROCHLORIDE\SAXAGLIPTIN HYDROCHLORIDE
     Indication: TYPE 2 DIABETES MELLITUS
     Dosage: 5/1000, UNKNOWN
     Route: 048
  7. COZAAR [Concomitant]
     Active Substance: LOSARTAN POTASSIUM
  8. LIPANTHYL [Concomitant]
     Active Substance: FENOFIBRATE
  9. KOMBIGLYZE XR [Suspect]
     Active Substance: METFORMIN HYDROCHLORIDE\SAXAGLIPTIN HYDROCHLORIDE
     Indication: TYPE 2 DIABETES MELLITUS
     Dosage: 1000/2.5 UNKNOWN
     Route: 048
  10. NATRILIX [Concomitant]
     Active Substance: INDAPAMIDE

REACTIONS (1)
  - Cardiac failure congestive [Unknown]
